FAERS Safety Report 5192822-7 (Version None)
Quarter: 2006Q4

REPORT INFORMATION
  Report Type: 
  Country: None (occurrence: None)
  Receive Date: 20061228
  Receipt Date: 20051118
  Transmission Date: 20070319
  Serious: No
  Sender: FDA-Public Use
  Company Number: US-GLAXOSMITHKLINE-A0582871A

PATIENT
  Age: 72 Year
  Sex: Female

DRUGS (4)
  1. FLONASE [Suspect]
     Dosage: 2SPR PER DAY
     Route: 045
  2. ZETIA [Concomitant]
  3. LIPITOR [Concomitant]
  4. XANAX [Concomitant]

REACTIONS (4)
  - DRUG INEFFECTIVE [None]
  - FEELING ABNORMAL [None]
  - PHARMACEUTICAL PRODUCT COMPLAINT [None]
  - SINUS CONGESTION [None]
